FAERS Safety Report 18250427 (Version 2)
Quarter: 2020Q3

REPORT INFORMATION
  Report Type: Spontaneous
  Country: US (occurrence: US)
  Receive Date: 20200909
  Receipt Date: 20200918
  Transmission Date: 20201103
  Serious: Yes (Life-Threatening, Hospitalization, Other)
  Sender: FDA-Public Use
  Company Number: US-JNJFOC-A-NJ2019-184414

PATIENT
  Age: 64 Year
  Sex: Female
  Weight: 113.38 kg

DRUGS (6)
  1. DILTIAZEM. [Concomitant]
     Active Substance: DILTIAZEM
  2. OPSUMIT [Suspect]
     Active Substance: MACITENTAN
     Route: 048
     Dates: start: 2015
  3. PREDNISONE. [Concomitant]
     Active Substance: PREDNISONE
  4. OPSUMIT [Suspect]
     Active Substance: MACITENTAN
     Indication: PULMONARY ARTERIAL HYPERTENSION
     Dosage: 10 MG, QD
     Route: 048
     Dates: start: 201607
  5. XARELTO [Concomitant]
     Active Substance: RIVAROXABAN
  6. OXYGEN. [Concomitant]
     Active Substance: OXYGEN
     Indication: PULMONARY ARTERIAL HYPERTENSION
     Dates: start: 2005

REACTIONS (14)
  - Immunodeficiency [Unknown]
  - Pharyngitis streptococcal [Recovering/Resolving]
  - Pericardial effusion [Recovered/Resolved]
  - Pulmonary arterial hypertension [Recovered/Resolved]
  - Bronchitis [Unknown]
  - Cerebrovascular accident [Recovered/Resolved]
  - Sepsis [Recovering/Resolving]
  - Pneumonia [Recovered/Resolved]
  - Asthma [Not Recovered/Not Resolved]
  - Anaemia [Unknown]
  - Condition aggravated [Recovered/Resolved]
  - Weight loss diet [Recovering/Resolving]
  - Pleural effusion [Recovered/Resolved]
  - Colitis ulcerative [Recovering/Resolving]

NARRATIVE: CASE EVENT DATE: 20181220
